FAERS Safety Report 25050955 (Version 1)
Quarter: 2025Q1

REPORT INFORMATION
  Report Type: Spontaneous
  Country: US (occurrence: US)
  Receive Date: 20250307
  Receipt Date: 20250307
  Transmission Date: 20250409
  Serious: Yes (Life-Threatening, Other)
  Sender: PFIZER
  Company Number: US-PFIZER INC-202500049253

PATIENT
  Age: 75 Year
  Sex: Male

DRUGS (4)
  1. VANCOMYCIN HYDROCHLORIDE [Suspect]
     Active Substance: VANCOMYCIN HYDROCHLORIDE
     Indication: Acinetobacter infection
  2. VANCOMYCIN HYDROCHLORIDE [Suspect]
     Active Substance: VANCOMYCIN HYDROCHLORIDE
     Indication: Staphylococcal infection
  3. MEROPENEM [Suspect]
     Active Substance: MEROPENEM
     Indication: Acinetobacter infection
     Dosage: 500 MG EVERY SIX HOURS
     Route: 042
  4. MEROPENEM [Suspect]
     Active Substance: MEROPENEM
     Indication: Staphylococcal infection

REACTIONS (1)
  - Drug ineffective [Unknown]
